FAERS Safety Report 13210032 (Version 4)
Quarter: 2017Q1

REPORT INFORMATION
  Report Type: Report from Study
  Country: US (occurrence: US)
  Receive Date: 20170209
  Receipt Date: 20170313
  Transmission Date: 20170428
  Serious: Yes (Hospitalization)
  Sender: FDA-Public Use
  Company Number: US-ACTELION-A-US2017-149396

PATIENT
  Age: 71 Year
  Sex: Female
  Weight: 102.4 kg

DRUGS (3)
  1. VELETRI [Suspect]
     Active Substance: EPOPROSTENOL
     Indication: PULMONARY ARTERIAL HYPERTENSION
     Dosage: 6 NG/KG, PER MIN
     Route: 042
  2. VELETRI [Suspect]
     Active Substance: EPOPROSTENOL
     Dosage: 5 NG/KG, PER MIN
     Route: 042
     Dates: end: 201703
  3. COUMADIN [Concomitant]
     Active Substance: WARFARIN SODIUM

REACTIONS (18)
  - Toothache [Unknown]
  - Eye irritation [Unknown]
  - Diarrhoea [Unknown]
  - Oxygen saturation decreased [Unknown]
  - International normalised ratio fluctuation [Unknown]
  - Therapy non-responder [Unknown]
  - Respiratory failure [Unknown]
  - Erythema [Unknown]
  - Facial pain [Unknown]
  - Pain in jaw [Unknown]
  - Headache [Unknown]
  - Pulmonary veno-occlusive disease [Unknown]
  - Oedema peripheral [Unknown]
  - Pain [Unknown]
  - Lacrimation increased [Unknown]
  - Hypoxia [Unknown]
  - Urinary tract infection [Unknown]
  - Flushing [Unknown]
